FAERS Safety Report 15146544 (Version 2)
Quarter: 2018Q3

REPORT INFORMATION
  Report Type: Report from Study
  Country: None (occurrence: US)
  Receive Date: 20180715
  Receipt Date: 20180821
  Transmission Date: 20181010
  Serious: Yes (Other)
  Sender: FDA-Public Use
  Company Number: US-ABBVIE-18K-163-2347260-00

PATIENT
  Age: 69 Year
  Sex: Female

DRUGS (2)
  1. HUMIRA [Suspect]
     Active Substance: ADALIMUMAB
     Route: 058
     Dates: start: 20180501
  2. HUMIRA [Suspect]
     Active Substance: ADALIMUMAB
     Indication: RHEUMATOID ARTHRITIS
     Route: 058
     Dates: start: 2016, end: 2017

REACTIONS (18)
  - Post procedural haematoma [Unknown]
  - Gout [Recovering/Resolving]
  - Pain [Unknown]
  - Drug ineffective [Not Recovered/Not Resolved]
  - Hip arthroplasty [Recovering/Resolving]
  - Anaemia [Unknown]
  - Device loosening [Unknown]
  - Loss of personal independence in daily activities [Recovering/Resolving]
  - Frustration tolerance decreased [Recovering/Resolving]
  - Joint stiffness [Recovering/Resolving]
  - Anxiety [Unknown]
  - Depression [Unknown]
  - Gait disturbance [Unknown]
  - Joint swelling [Unknown]
  - Intervertebral disc protrusion [Unknown]
  - Procedural pain [Unknown]
  - Fatigue [Not Recovered/Not Resolved]
  - Arthralgia [Unknown]

NARRATIVE: CASE EVENT DATE: 2016
